FAERS Safety Report 8104789-X (Version None)
Quarter: 2012Q1

REPORT INFORMATION
  Report Type: 
  Country: None (occurrence: None)
  Receive Date: 20120130
  Receipt Date: 20120125
  Transmission Date: 20120608
  Serious: Yes (Hospitalization, Other)
  Sender: FDA-Public Use
  Company Number: FR-PFIZER INC-2012000091

PATIENT
  Age: 70 Year
  Sex: Female

DRUGS (11)
  1. BISOPROLOL FUMARATE [Concomitant]
  2. FOLIC ACID [Concomitant]
  3. FOSRENOL [Concomitant]
  4. IMODIUM [Concomitant]
  5. SUTENT [Suspect]
     Indication: METASTASES TO LUNG
     Dosage: 50 MG, 1X/DAY
     Route: 048
     Dates: start: 20071101, end: 20110506
  6. CALCIUM CARBONATE [Concomitant]
  7. LANSOPRAZOLE [Concomitant]
  8. REPAGLINIDE [Concomitant]
  9. SUTENT [Suspect]
     Dosage: 37.5 MG, 1X/DAY
     Route: 048
     Dates: start: 20110901, end: 20110910
  10. LEVOTHYROXINE SODIUM [Concomitant]
  11. KAYEXALATE [Concomitant]

REACTIONS (1)
  - HEPATITIS ACUTE [None]
